FAERS Safety Report 8608636-9 (Version None)
Quarter: 2012Q3

REPORT INFORMATION
  Report Type: 
  Country: None (occurrence: None)
  Receive Date: 20120821
  Receipt Date: 20120814
  Transmission Date: 20120928
  Serious: No
  Sender: FDA-Public Use
  Company Number: US-PFIZER INC-2012162677

PATIENT
  Age: 79 Year
  Sex: Female
  Weight: 53.968 kg

DRUGS (4)
  1. LATANOPROST [Suspect]
     Indication: GLAUCOMA
     Dosage: UNK, 1X/DAY
     Route: 047
     Dates: start: 20120618
  2. CADUET [Concomitant]
     Indication: BLOOD CHOLESTEROL INCREASED
  3. LATANOPROST [Suspect]
     Indication: INTRAOCULAR PRESSURE INCREASED
  4. CADUET [Concomitant]
     Indication: HYPERTENSION
     Dosage: UNK

REACTIONS (3)
  - OVERDOSE [None]
  - PRODUCT DROPPER ISSUE [None]
  - EYELIDS PRURITUS [None]
